FAERS Safety Report 6277476-0 (Version None)
Quarter: 2009Q3

REPORT INFORMATION
  Report Type: 
  Country: None (occurrence: None)
  Receive Date: 20090722
  Receipt Date: 20090710
  Transmission Date: 20100115
  Serious: Yes (Death)
  Sender: FDA-Public Use
  Company Number: US-PFIZER INC-2009196149

PATIENT
  Sex: Male

DRUGS (7)
  1. SUTENT [Suspect]
     Indication: METASTATIC RENAL CELL CARCINOMA
     Dosage: 50 MG, 1X/DAY
     Dates: start: 20090314, end: 20090301
  2. MS CONTIN [Concomitant]
     Dosage: UNK
  3. MORPHINE SULFATE [Concomitant]
     Dosage: UNK
  4. AMBIEN [Concomitant]
     Dosage: UNK
  5. COLACE [Concomitant]
     Dosage: UNK
  6. FERROUS SULFATE [Concomitant]
     Dosage: UNK
  7. SENOKOT [Concomitant]
     Dosage: UNK

REACTIONS (2)
  - DISEASE PROGRESSION [None]
  - METASTATIC RENAL CELL CARCINOMA [None]
